FAERS Safety Report 16773736 (Version 2)
Quarter: 2019Q3

REPORT INFORMATION
  Report Type: Spontaneous
  Country: US (occurrence: US)
  Receive Date: 20190904
  Receipt Date: 20190904
  Transmission Date: 20191005
  Serious: Yes (Other)
  Sender: FDA-Public Use
  Company Number: PHEH2019US036221

PATIENT
  Age: 26 Year
  Sex: Female

DRUGS (12)
  1. CLOFAZIMINE [Suspect]
     Active Substance: CLOFAZIMINE
     Indication: MYCOBACTERIUM ABSCESSUS INFECTION
     Dosage: UNK
     Route: 065
  2. TIGECYCLINE. [Suspect]
     Active Substance: TIGECYCLINE
     Indication: MYCOBACTERIUM ABSCESSUS INFECTION
     Dosage: UNK
     Route: 065
  3. ERAVACYCLINE. [Concomitant]
     Active Substance: ERAVACYCLINE
     Indication: MYCOBACTERIUM ABSCESSUS INFECTION
     Dosage: UNK
     Route: 065
  4. LINEZOLID. [Suspect]
     Active Substance: LINEZOLID
     Indication: MYCOBACTERIUM ABSCESSUS INFECTION
     Dosage: UNK
     Route: 065
  5. AMIKACIN. [Suspect]
     Active Substance: AMIKACIN
     Indication: MYCOBACTERIUM ABSCESSUS INFECTION
     Dosage: UNK (NEBULIZER)
     Route: 065
  6. MEROPENEM. [Concomitant]
     Active Substance: MEROPENEM
     Indication: CYSTIC FIBROSIS
     Dosage: UNK
     Route: 065
  7. SULFAMETHOXAZOLE AND TRIMETHOPRIM [Concomitant]
     Active Substance: SULFAMETHOXAZOLE\TRIMETHOPRIM
     Indication: CYSTIC FIBROSIS
     Dosage: UNK
     Route: 065
  8. AMIKACIN. [Suspect]
     Active Substance: AMIKACIN
     Indication: MYCOBACTERIUM ABSCESSUS INFECTION
     Dosage: UNK
     Route: 042
  9. TEDIZOLID [Concomitant]
     Active Substance: TEDIZOLID
     Indication: MYCOBACTERIUM ABSCESSUS INFECTION
     Dosage: UNK
     Route: 065
  10. IMIPENEM [Suspect]
     Active Substance: IMIPENEM
     Indication: MYCOBACTERIUM ABSCESSUS INFECTION
     Dosage: UNK
     Route: 065
  11. CEFOXITIN [Suspect]
     Active Substance: CEFOXITIN SODIUM
     Indication: MYCOBACTERIUM ABSCESSUS INFECTION
     Dosage: UNK
     Route: 065
  12. VABORBACTAM. [Concomitant]
     Active Substance: VABORBACTAM
     Indication: CYSTIC FIBROSIS
     Dosage: UNK
     Route: 065

REACTIONS (6)
  - Drug intolerance [Unknown]
  - Tinnitus [Unknown]
  - Nausea [Unknown]
  - Disease susceptibility [Unknown]
  - Serotonin syndrome [Unknown]
  - Vomiting [Unknown]
